FAERS Safety Report 24409830 (Version 1)
Quarter: 2024Q4

REPORT INFORMATION
  Report Type: Spontaneous
  Country: US (occurrence: US)
  Receive Date: 20241008
  Receipt Date: 20241008
  Transmission Date: 20250115
  Serious: No
  Sender: KALEO
  Company Number: US-Kaleo, Inc.-2023KL000047

PATIENT
  Age: 61 Year
  Sex: Male
  Weight: 111.13 kg

DRUGS (1)
  1. AUVI-Q [Suspect]
     Active Substance: EPINEPHRINE
     Indication: Anaphylactic reaction
     Dates: start: 20230825, end: 20230825

REACTIONS (1)
  - Drug effect less than expected [Recovered/Resolved]
